FAERS Safety Report 7684299-4 (Version None)
Quarter: 2011Q3

REPORT INFORMATION
  Report Type: 
  Country: None (occurrence: None)
  Receive Date: 20110815
  Receipt Date: 20110802
  Transmission Date: 20111222
  Serious: Yes (Death)
  Sender: FDA-Public Use
  Company Number: IT-MYLANLABS-2011S1015903

PATIENT
  Age: 39 Year
  Sex: Male

DRUGS (2)
  1. PROPRANOLOL [Suspect]
     Indication: THYROTOXIC CRISIS
     Route: 042
  2. PROPRANOLOL [Suspect]
     Dosage: INFUSION RATE: 0.16 MG/MIN OVER 30 MINUTES
     Route: 041

REACTIONS (3)
  - CARDIOGENIC SHOCK [None]
  - MULTI-ORGAN FAILURE [None]
  - CARDIAC ARREST [None]
